FAERS Safety Report 15041730 (Version 2)
Quarter: 2018Q3

REPORT INFORMATION
  Report Type: Report from Study
  Country: GB (occurrence: GB)
  Receive Date: 20180621
  Receipt Date: 20180705
  Transmission Date: 20181010
  Serious: Yes (Other)
  Sender: FDA-Public Use
  Company Number: GB-TEVA-2018-GB-908487

PATIENT
  Age: 54 Year
  Sex: Male

DRUGS (4)
  1. COPAXONE [Suspect]
     Active Substance: GLATIRAMER ACETATE
     Indication: RELAPSING-REMITTING MULTIPLE SCLEROSIS
     Dosage: 20 MILLIGRAM/MILLILITERS DAILY;
     Route: 058
     Dates: start: 20090101
  2. COPAXONE [Suspect]
     Active Substance: GLATIRAMER ACETATE
     Dates: start: 20100620
  3. TATALAPRAM [Concomitant]
     Indication: PANIC ATTACK
     Dosage: 40 MILLIGRAM DAILY;
  4. BACLOFEN. [Concomitant]
     Active Substance: BACLOFEN
     Indication: PAIN

REACTIONS (7)
  - Infection [Unknown]
  - Blister [Recovering/Resolving]
  - Contusion [Unknown]
  - Product contamination [Recovering/Resolving]
  - Injection site reaction [Recovering/Resolving]
  - Scar [Recovering/Resolving]
  - Balance disorder [Recovering/Resolving]

NARRATIVE: CASE EVENT DATE: 201805
